FAERS Safety Report 9070942 (Version 1)
Quarter: 2013Q1

REPORT INFORMATION
  Report Type: Spontaneous
  Country: US (occurrence: US)
  Receive Date: 20130206
  Receipt Date: 20130206
  Transmission Date: 20140127
  Serious: No
  Sender: FDA-Public Use
  Company Number: US-ALLERGAN-1206934US

PATIENT
  Age: 51 Year
  Sex: Male

DRUGS (4)
  1. RESTASIS? [Suspect]
     Indication: DRY EYE
     Dosage: 2 GTT, BID
     Route: 047
     Dates: start: 20120401
  2. RESTASIS? [Suspect]
     Indication: KERATOMILEUSIS
  3. REFRESH TEARS [Concomitant]
     Indication: DRY EYE
     Dosage: 2 GTT, PRN
     Route: 047
  4. MEDICATION FOR HEARTBURN [Concomitant]
     Indication: DYSPEPSIA

REACTIONS (2)
  - Pharyngeal oedema [Unknown]
  - Sensation of foreign body [Unknown]
